FAERS Safety Report 5514315-7 (Version None)
Quarter: 2007Q4

REPORT INFORMATION
  Report Type: 
  Country: None (occurrence: None)
  Receive Date: 20071113
  Receipt Date: 20070409
  Transmission Date: 20080405
  Serious: No
  Sender: FDA-Public Use
  Company Number: A0646878A

PATIENT
  Sex: Male

DRUGS (1)
  1. COREG [Suspect]
     Indication: BLOOD PRESSURE
     Route: 065

REACTIONS (4)
  - BALANCE DISORDER [None]
  - CHEST PAIN [None]
  - DIZZINESS [None]
  - RASH [None]
